FAERS Safety Report 7633836-4 (Version None)
Quarter: 2011Q3

REPORT INFORMATION
  Report Type: 
  Country: None (occurrence: None)
  Receive Date: 20110714
  Receipt Date: 20100826
  Transmission Date: 20111222
  Serious: Yes (Life-Threatening, Hospitalization)
  Sender: FDA-Public Use
  Company Number: 2010SP046213

PATIENT
  Age: 70 Year
  Sex: Male

DRUGS (3)
  1. INTEGRILIN [Suspect]
     Indication: PERCUTANEOUS CORONARY INTERVENTION
     Dosage: IV
     Route: 042
     Dates: start: 20100822, end: 20100822
  2. HEPARIN [Concomitant]
  3. COUMADIN [Concomitant]

REACTIONS (1)
  - PULMONARY HAEMORRHAGE [None]
